FAERS Safety Report 5933704-X (Version None)
Quarter: 2008Q4

REPORT INFORMATION
  Report Type: 
  Country: None (occurrence: None)
  Receive Date: 20081029
  Receipt Date: 20081024
  Transmission Date: 20090506
  Serious: Yes (Other)
  Sender: FDA-Public Use
  Company Number: AU-BRISTOL-MYERS SQUIBB COMPANY-14384549

PATIENT
  Age: 69 Year
  Sex: Male

DRUGS (7)
  1. AVAPRO [Suspect]
  2. ISCOVER [Suspect]
  3. ACTONEL WITH CALCIUM (COPACKAGED) [Suspect]
     Route: 048
     Dates: start: 20071207
  4. DIABEX [Concomitant]
  5. SYMBICORT [Concomitant]
  6. ASMOL [Concomitant]
  7. CHEMOTHERAPY [Concomitant]
     Indication: SMALL CELL CARCINOMA
     Dates: start: 20080301, end: 20080701

REACTIONS (1)
  - SMALL CELL CARCINOMA [None]
